FAERS Safety Report 7864361-3 (Version None)
Quarter: 2011Q4

REPORT INFORMATION
  Report Type: 
  Country: None (occurrence: None)
  Receive Date: 20111028
  Receipt Date: 20111020
  Transmission Date: 20120403
  Serious: Yes (Other)
  Sender: FDA-Public Use
  Company Number: SE-ASTELLAS-2011EU001637

PATIENT
  Sex: Female

DRUGS (2)
  1. PROGRAF [Suspect]
     Indication: CORNEAL TRANSPLANT
     Dosage: 5 MG, BID
     Route: 048
     Dates: start: 20110209
  2. MYCOPHENOLATE MOFETIL (CELLCEPT) [Concomitant]
     Indication: TRANSPLANT REJECTION
     Dosage: 1000 MG, BID
     Route: 065
     Dates: start: 20110209, end: 20110401

REACTIONS (8)
  - HYPOAESTHESIA [None]
  - VISUAL IMPAIRMENT [None]
  - PARAESTHESIA [None]
  - VISUAL ACUITY REDUCED [None]
  - NAUSEA [None]
  - DIZZINESS [None]
  - COLOUR BLINDNESS ACQUIRED [None]
  - OFF LABEL USE [None]
